FAERS Safety Report 6403077-7 (Version None)
Quarter: 2009Q4

REPORT INFORMATION
  Report Type: 
  Country: None (occurrence: None)
  Receive Date: 20091015
  Receipt Date: 20091015
  Transmission Date: 20100525
  Serious: No
  Sender: FDA-Public Use
  Company Number: None

PATIENT
  Sex: Female
  Weight: 51.4379 kg

DRUGS (1)
  1. TEMAZEPAM [Suspect]
     Dosage: 15 MG 1-2 QH6 PRN P.O
     Route: 048

REACTIONS (2)
  - DRUG INEFFECTIVE [None]
  - TINNITUS [None]
